FAERS Safety Report 8885744 (Version 1)
Quarter: 2012Q4

REPORT INFORMATION
  Report Type: Report from Study
  Country: US (occurrence: US)
  Receive Date: 20121102
  Receipt Date: 20121102
  Transmission Date: 20130627
  Serious: No
  Sender: FDA-Public Use
  Company Number: US-VERTEX PHARMACEUTICAL INC.-2012-023898

PATIENT
  Age: 56 Year
  Sex: Male
  Weight: 88.89 kg

DRUGS (4)
  1. VX-950 [Suspect]
     Indication: HEPATITIS C
     Dosage: 750 mg, tid
     Route: 048
     Dates: start: 20121019
  2. RIBAVIRIN [Suspect]
     Dosage: 600 mg, bid
     Route: 048
     Dates: start: 20121019
  3. PEGASYS [Suspect]
     Dosage: 180 ?g, qw
     Route: 058
     Dates: start: 20121019
  4. OXYCODONE [Concomitant]

REACTIONS (6)
  - Headache [Not Recovered/Not Resolved]
  - Injection site bruising [Not Recovered/Not Resolved]
  - Influenza like illness [Recovered/Resolved]
  - Back pain [Recovered/Resolved]
  - Nausea [Not Recovered/Not Resolved]
  - Diarrhoea [Not Recovered/Not Resolved]
